FAERS Safety Report 4527098-4 (Version None)
Quarter: 2004Q4

REPORT INFORMATION
  Report Type: 
  Country: None (occurrence: None)
  Receive Date: 20041129
  Receipt Date: 20040510
  Transmission Date: 20050328
  Serious: Yes (Hospitalization, Other)
  Sender: FDA-Public Use
  Company Number: USA040567057

PATIENT
  Age: 83 Year
  Sex: Female

DRUGS (3)
  1. ZYPREXA [Suspect]
     Indication: DEMENTIA
     Dosage: 2.5 MG
     Dates: start: 20040101, end: 20040401
  2. ZYPREXA [Suspect]
     Indication: HALLUCINATION
     Dosage: 2.5 MG
     Dates: start: 20040101, end: 20040401
  3. XANAX [Concomitant]

REACTIONS (4)
  - CONVULSION [None]
  - MUSCULOSKELETAL STIFFNESS [None]
  - NERVOUSNESS [None]
  - PARALYSIS [None]
